FAERS Safety Report 5648133-6 (Version None)
Quarter: 2008Q1

REPORT INFORMATION
  Report Type: 
  Country: None (occurrence: None)
  Receive Date: 20080229
  Receipt Date: 20080218
  Transmission Date: 20080703
  Serious: Yes (Hospitalization)
  Sender: FDA-Public Use
  Company Number: 024342

PATIENT
  Age: 44 Year
  Sex: Female

DRUGS (3)
  1. CARBOPLATIN [Suspect]
     Indication: OVARIAN CANCER
     Dosage: 792 MG IN 250 ML NS (AUC OF 6)
  2. DEXAMETHASONE TAB [Concomitant]
  3. PACLITAXEL [Concomitant]

REACTIONS (3)
  - HYDRONEPHROSIS [None]
  - RENAL FAILURE ACUTE [None]
  - RENAL HAEMORRHAGE [None]
